FAERS Safety Report 15895730 (Version 2)
Quarter: 2019Q1

REPORT INFORMATION
  Report Type: Spontaneous
  Country: CO (occurrence: CO)
  Receive Date: 20190131
  Receipt Date: 20190308
  Transmission Date: 20190417
  Serious: Yes (Other)
  Sender: FDA-Public Use
  Company Number: CO-PFIZER INC-2018408015

PATIENT
  Age: 10 Year
  Sex: Male

DRUGS (4)
  1. GENOTROPIN [Suspect]
     Active Substance: SOMATROPIN
     Indication: HYPOTHALAMO-PITUITARY DISORDER
  2. SOMATROPIN. [Suspect]
     Active Substance: SOMATROPIN
     Dosage: 1.4 MG, UNK
  3. GENOTROPIN [Suspect]
     Active Substance: SOMATROPIN
     Indication: GROWTH HORMONE DEFICIENCY
     Dosage: 1.4 MG, DAILY
     Route: 058
     Dates: start: 20181003
  4. GENOTROPIN [Suspect]
     Active Substance: SOMATROPIN
     Indication: DIABETES INSIPIDUS
     Dosage: 1.0 MG, UNK
     Route: 058
     Dates: start: 201810

REACTIONS (7)
  - Headache [Not Recovered/Not Resolved]
  - Swelling of eyelid [Not Recovered/Not Resolved]
  - Vomiting [Not Recovered/Not Resolved]
  - Intracranial pressure increased [Unknown]
  - Product dispensing error [Unknown]
  - Eyelid ptosis [Not Recovered/Not Resolved]
  - Eye swelling [Not Recovered/Not Resolved]

NARRATIVE: CASE EVENT DATE: 20180925
